FAERS Safety Report 5688868-2 (Version None)
Quarter: 2008Q1

REPORT INFORMATION
  Report Type: 
  Country: None (occurrence: None)
  Receive Date: 20080331
  Receipt Date: 20050518
  Transmission Date: 20080703
  Serious: Yes (Death)
  Sender: FDA-Public Use
  Company Number: DE-ROCHE-405347

PATIENT
  Age: 62 Year
  Sex: Male
  Weight: 118 kg

DRUGS (5)
  1. TAMIFLU [Suspect]
     Route: 048
     Dates: start: 20050513
  2. TEMPIL N [Suspect]
     Dosage: DOSAGE REPORTED AS IF REQUIRED.
     Route: 048
     Dates: start: 20050513
  3. TEMPIL [Concomitant]
     Route: 048
     Dates: start: 20031001
  4. DICLOFENAC [Concomitant]
  5. ALLOPURINOL [Concomitant]
     Route: 048

REACTIONS (4)
  - ABDOMINAL DISCOMFORT [None]
  - DEATH [None]
  - NAUSEA [None]
  - VOMITING [None]
